FAERS Safety Report 10494582 (Version 1)
Quarter: 2014Q4

REPORT INFORMATION
  Report Type: Spontaneous
  Country: US (occurrence: None)
  Receive Date: 20141002
  Receipt Date: 20141002
  Transmission Date: 20150528
  Serious: Yes (Hospitalization)
  Sender: FDA-Public Use
  Company Number: None

PATIENT
  Age: 80 Year
  Sex: Male
  Weight: 82.74 kg

DRUGS (1)
  1. LITHIUM [Suspect]
     Active Substance: LITHIUM CARBONATE
     Indication: BIPOLAR I DISORDER
     Route: 048
     Dates: start: 20130103, end: 20140729

REACTIONS (5)
  - Drug level increased [None]
  - Nausea [None]
  - Diarrhoea [None]
  - Vomiting [None]
  - Toxicity to various agents [None]

NARRATIVE: CASE EVENT DATE: 20140729
